FAERS Safety Report 9679274 (Version 2)
Quarter: 2014Q1

REPORT INFORMATION
  Report Type: Spontaneous
  Country: US (occurrence: US)
  Receive Date: 20131109
  Receipt Date: 20140123
  Transmission Date: 20141002
  Serious: No
  Sender: FDA-Public Use
  Company Number: US-B.I. PHARMACEUTICALS,INC./RIDGEFIELD-2013-BI-34405BP

PATIENT
  Age: 91 Year
  Sex: Female

DRUGS (1)
  1. COMBIVENT [Suspect]
     Dosage: STRENGTH: 20 MCG / 100 MCG; DAILY DOSE: 80 MCG / 200 MCG
     Route: 055
     Dates: start: 201307, end: 201310

REACTIONS (2)
  - Medication error [Recovered/Resolved]
  - Product quality issue [Recovered/Resolved]
